FAERS Safety Report 16998484 (Version 1)
Quarter: 2019Q4

REPORT INFORMATION
  Report Type: Spontaneous
  Country: US (occurrence: US)
  Receive Date: 20191106
  Receipt Date: 20191106
  Transmission Date: 20200122
  Serious: Yes (Other)
  Sender: FDA-Public Use
  Company Number: US-GLAXOSMITHKLINE-US2019GSK197896

PATIENT
  Age: 69 Year
  Sex: Female

DRUGS (2)
  1. LAMIVUDINE. [Suspect]
     Active Substance: LAMIVUDINE
     Indication: ADULT T-CELL LYMPHOMA/LEUKAEMIA
     Dosage: UNK
  2. INTERFERON [Suspect]
     Active Substance: INTERFERON
     Indication: ADULT T-CELL LYMPHOMA/LEUKAEMIA
     Dosage: UNK

REACTIONS (1)
  - Neutropenia [Unknown]
